FAERS Safety Report 25857342 (Version 2)
Quarter: 2025Q4

REPORT INFORMATION
  Report Type: Other
  Country: US (occurrence: US)
  Receive Date: 20250929
  Receipt Date: 20251006
  Transmission Date: 20260117
  Serious: No
  Sender: TRAVERE THERAPEUTICS
  Company Number: US-TRAVERE-2025TVT01095

PATIENT
  Sex: Female

DRUGS (3)
  1. FILSPARI [Suspect]
     Active Substance: SPARSENTAN
     Indication: IgA nephropathy
     Route: 048
     Dates: start: 20250103
  2. FILSPARI [Suspect]
     Active Substance: SPARSENTAN
     Indication: Haematuria
  3. KESIMPTA [Concomitant]
     Active Substance: OFATUMUMAB

REACTIONS (3)
  - Dysuria [Unknown]
  - Micturition urgency [Unknown]
  - Drug ineffective [Unknown]
